FAERS Safety Report 4439804-8 (Version None)
Quarter: 2004Q3

REPORT INFORMATION
  Report Type: 
  Country: None (occurrence: None)
  Receive Date: 20040831
  Receipt Date: 20040818
  Transmission Date: 20050211
  Serious: Yes (Life-Threatening, Hospitalization)
  Sender: FDA-Public Use
  Company Number: 2004057112

PATIENT
  Age: 59 Year
  Sex: Female

DRUGS (4)
  1. PHENYTOIN [Suspect]
     Indication: EPILEPSY
     Dosage: 300 MG (1 IN 1 D), ORAL
     Route: 048
     Dates: start: 20040605, end: 20040621
  2. PONSTEL [Suspect]
     Indication: ILL-DEFINED DISORDER
     Dosage: 1500 MG (1 IN 1 D), ORAL
     Route: 048
     Dates: start: 20040605, end: 20040621
  3. OMEPRAZOLE [Suspect]
     Indication: OESOPHAGITIS
     Dosage: 20 MG (1 IN 1 D), ORAL
     Route: 048
     Dates: start: 20040605, end: 20040621
  4. DEXAMETHASONE PHOSPHATE (DEXAMETHASONE PHOSPHATE) [Concomitant]

REACTIONS (1)
  - TOXIC EPIDERMAL NECROLYSIS [None]
